FAERS Safety Report 14574471 (Version 1)
Quarter: 2018Q1

REPORT INFORMATION
  Report Type: Spontaneous
  Country: IE (occurrence: IE)
  Receive Date: 20180226
  Receipt Date: 20180226
  Transmission Date: 20180509
  Serious: Yes (Disabling, Other)
  Sender: FDA-Public Use
  Company Number: IE-TAKEDA-2018TUS000543

PATIENT
  Age: 49 Year
  Sex: Female
  Weight: 68 kg

DRUGS (1)
  1. ENTYVIO [Suspect]
     Active Substance: VEDOLIZUMAB
     Indication: CROHN^S DISEASE
     Dosage: 300 MG, UNK
     Route: 042
     Dates: start: 20170928, end: 20180104

REACTIONS (9)
  - Kidney infection [Recovered/Resolved with Sequelae]
  - Mouth ulceration [Unknown]
  - Urinary tract infection [Recovered/Resolved with Sequelae]
  - Fatigue [Unknown]
  - Tremor [Recovered/Resolved with Sequelae]
  - Constipation [Unknown]
  - Hyperhidrosis [Recovered/Resolved with Sequelae]
  - Paraesthesia [Recovered/Resolved]
  - Influenza like illness [Recovered/Resolved]

NARRATIVE: CASE EVENT DATE: 20171005
